FAERS Safety Report 10026920 (Version 1)
Quarter: 2014Q1

REPORT INFORMATION
  Report Type: Spontaneous
  Country: ES (occurrence: ES)
  Receive Date: 20140321
  Receipt Date: 20140321
  Transmission Date: 20141002
  Serious: Yes (Other)
  Sender: FDA-Public Use
  Company Number: PHHY2014ES029694

PATIENT
  Age: 69 Year
  Sex: Female

DRUGS (7)
  1. PREDNISONE [Suspect]
     Dosage: 60 MG, DAILY
  2. PREDNISONE [Suspect]
     Dosage: 20 MG, DAILY
  3. PREDNISONE [Suspect]
     Dosage: 10 MG, DAILY
  4. AZATHIOPRINE [Concomitant]
  5. ALENDRONATE [Concomitant]
     Indication: OSTEOPOROSIS
     Dosage: 70 MG, WEEKLY
  6. CALCIUM [Concomitant]
     Indication: OSTEOPOROSIS
     Dosage: 1000 MG, UNK
  7. VITAMIN D [Concomitant]
     Indication: OSTEOPOROSIS
     Dosage: 400 U, UNK

REACTIONS (4)
  - Intervertebral disc degeneration [Unknown]
  - Lumbar vertebral fracture [Unknown]
  - Osteonecrosis [Unknown]
  - Back pain [Unknown]
